FAERS Safety Report 13114523 (Version 1)
Quarter: 2017Q1

REPORT INFORMATION
  Report Type: Spontaneous
  Country: IN (occurrence: IN)
  Receive Date: 20170113
  Receipt Date: 20170113
  Transmission Date: 20170428
  Serious: Yes (Other)
  Sender: FDA-Public Use
  Company Number: IN-FRESENIUS KABI-FK201700363

PATIENT
  Weight: 1.75 kg

DRUGS (3)
  1. METHYLPREDNISOLONE (MANUFACTURER UNKNOWN) [Suspect]
     Active Substance: METHYLPREDNISOLONE
     Indication: RETINAL VEIN OCCLUSION
     Route: 064
  2. PREDNISOLONE. [Suspect]
     Active Substance: PREDNISOLONE
     Indication: RETINAL VEIN OCCLUSION
     Route: 064
  3. TOPICAL STEROIDS [Suspect]
     Active Substance: UNSPECIFIED INGREDIENT
     Indication: RETINAL VEIN OCCLUSION
     Route: 064

REACTIONS (2)
  - Foetal exposure during pregnancy [Unknown]
  - Low birth weight baby [Unknown]
